FAERS Safety Report 8879417 (Version 1)
Quarter: 2012Q4

REPORT INFORMATION
  Report Type: 
  Country: FR (occurrence: FR)
  Receive Date: 20121031
  Receipt Date: 20121031
  Transmission Date: 20130627
  Serious: Yes (Life-Threatening, Hospitalization)
  Sender: FDA-Public Use
  Company Number: FR-ASTRAZENECA-2012SE82066

PATIENT
  Age: 28510 Day
  Sex: Female

DRUGS (8)
  1. INEXIUM [Suspect]
     Route: 048
     Dates: start: 201207, end: 20120910
  2. ZOLOFT [Suspect]
     Route: 048
     Dates: end: 20120910
  3. DEPAMIDE [Concomitant]
  4. MIANSERINE [Concomitant]
  5. LEXOMIL [Concomitant]
  6. AVLOCARDYL [Concomitant]
  7. PIASCLEDINE [Concomitant]
  8. LOXEN [Concomitant]

REACTIONS (3)
  - Ischaemic stroke [Unknown]
  - Condition aggravated [Unknown]
  - Hyponatraemia [Recovered/Resolved]
